FAERS Safety Report 9827703 (Version 4)
Quarter: 2014Q2

REPORT INFORMATION
  Report Type: Report from Study
  Country: ES (occurrence: ES)
  Receive Date: 20140117
  Receipt Date: 20140428
  Transmission Date: 20141212
  Serious: Yes (Hospitalization, Other)
  Sender: FDA-Public Use
  Company Number: ES-VERTEX PHARMACEUTICALS INC-2014-000234

PATIENT
  Age: 65 Year
  Sex: Male
  Weight: 81 kg

DRUGS (9)
  1. TELAPREVIR [Suspect]
     Indication: HEPATITIS C
     Dosage: 2250 MG, QD, TABLET
     Dates: start: 20130404, end: 20130410
  2. PEGINTERFERON ALFA-2A [Suspect]
     Indication: CHRONIC HEPATITIS C
     Dosage: 180 ?G, UNK
     Dates: start: 20130404, end: 20130410
  3. RIBAVIRIN [Suspect]
     Indication: CHRONIC HEPATITIS C
     Dates: start: 20130404, end: 20140410
  4. LOSARTAN [Concomitant]
     Indication: HYPERTENSION
     Route: 048
     Dates: start: 201303
  5. FUROSEMIDE [Concomitant]
     Indication: HYPERTENSION
     Route: 048
     Dates: start: 20100111
  6. PROPRANOLOL [Concomitant]
     Indication: PORTAL HYPERTENSION
     Route: 048
     Dates: start: 2007
  7. OMEPRAZOLE [Concomitant]
     Indication: ABDOMINAL PAIN UPPER
     Route: 048
     Dates: start: 20121016
  8. EUCREAS [Concomitant]
     Indication: DIABETES MELLITUS
     Route: 048
     Dates: start: 20121016
  9. IDEOS [Concomitant]
     Indication: OSTEOPENIA
     Route: 048
     Dates: start: 20130321

REACTIONS (1)
  - Ischaemic stroke [Recovered/Resolved]
